FAERS Safety Report 9314881 (Version 2)
Quarter: 2013Q4

REPORT INFORMATION
  Report Type: Spontaneous
  Country: JP (occurrence: JP)
  Receive Date: 20130529
  Receipt Date: 20131017
  Transmission Date: 20140711
  Serious: Yes (Life-Threatening, Hospitalization)
  Sender: FDA-Public Use
  Company Number: PHHY2013JP052524

PATIENT
  Age: 75 Year
  Sex: Male

DRUGS (1)
  1. AMANTADINE [Suspect]
     Indication: PARKINSON^S DISEASE
     Route: 048

REACTIONS (12)
  - Toxicity to various agents [Recovering/Resolving]
  - Myoclonus [Recovering/Resolving]
  - Pneumonia aspiration [Recovering/Resolving]
  - Epistaxis [Recovering/Resolving]
  - Musculoskeletal stiffness [Recovering/Resolving]
  - Communication disorder [Recovering/Resolving]
  - Aphasia [Recovering/Resolving]
  - Altered state of consciousness [Recovering/Resolving]
  - Dysphagia [Recovering/Resolving]
  - Pyrexia [Recovering/Resolving]
  - Movement disorder [Recovering/Resolving]
  - Anaemia [Recovering/Resolving]
